FAERS Safety Report 4767404-9 (Version None)
Quarter: 2005Q3

REPORT INFORMATION
  Report Type: 
  Country: None (occurrence: None)
  Receive Date: 20050909
  Receipt Date: 20050901
  Transmission Date: 20060218
  Serious: Yes (Hospitalization)
  Sender: FDA-Public Use
  Company Number: 005575

PATIENT
  Age: 27 Year
  Sex: Female

DRUGS (1)
  1. CLARAVIS [Suspect]
     Indication: ACNE
     Dosage: 40.00 MG, QD, ORAL
     Route: 048
     Dates: start: 20050315, end: 20050622

REACTIONS (4)
  - DIZZINESS [None]
  - INNER EAR DISORDER [None]
  - LOSS OF CONSCIOUSNESS [None]
  - PANIC ATTACK [None]
